FAERS Safety Report 9689698 (Version 2)
Quarter: 2013Q4

REPORT INFORMATION
  Report Type: Report from Study
  Country: CA (occurrence: CA)
  Receive Date: 20131115
  Receipt Date: 20131209
  Transmission Date: 20140711
  Serious: Yes (Hospitalization)
  Sender: FDA-Public Use
  Company Number: CA-ROCHE-1303204

PATIENT
  Sex: Female
  Weight: 49 kg

DRUGS (3)
  1. ACTEMRA [Suspect]
     Indication: RHEUMATOID ARTHRITIS
     Route: 042
     Dates: start: 20110329
  2. CELEBREX [Concomitant]
  3. PREDNISONE [Concomitant]

REACTIONS (1)
  - Convulsion [Unknown]
